FAERS Safety Report 5170776-7 (Version None)
Quarter: 2006Q4

REPORT INFORMATION
  Report Type: 
  Country: None (occurrence: None)
  Receive Date: 20060919
  Receipt Date: 20060516
  Transmission Date: 20070319
  Serious: No
  Sender: FDA-Public Use
  Company Number: BDI-008259

PATIENT
  Age: 57 Year
  Sex: Female

DRUGS (3)
  1. MULTIHANCE [Suspect]
     Indication: NUCLEAR MAGNETIC RESONANCE IMAGING BRAIN
     Dosage: 15 ML ONCE IV
     Route: 042
     Dates: start: 20060512, end: 20060512
  2. MULTIHANCE [Suspect]
     Indication: PREOPERATIVE CARE
     Dosage: 15 ML ONCE IV
     Route: 042
     Dates: start: 20060512, end: 20060512
  3. ANTINEOPLASTIC AGENTS [Concomitant]

REACTIONS (2)
  - NAUSEA [None]
  - URTICARIA [None]
